FAERS Safety Report 16967698 (Version 2)
Quarter: 2019Q4

REPORT INFORMATION
  Report Type: Spontaneous
  Country: US (occurrence: US)
  Receive Date: 20191028
  Receipt Date: 20191129
  Transmission Date: 20200122
  Serious: Yes (Other)
  Sender: FDA-Public Use
  Company Number: US-ELI_LILLY_AND_COMPANY-US201910012300

PATIENT
  Age: 25 Year
  Sex: Female
  Weight: 62.59 kg

DRUGS (3)
  1. EMGALITY [Suspect]
     Active Substance: GALCANEZUMAB-GNLM
     Indication: MIGRAINE PROPHYLAXIS
     Dosage: 240 MG, OTHER
     Route: 058
     Dates: start: 20191003, end: 20191003
  2. EUCRISA [Concomitant]
     Active Substance: CRISABOROLE
     Indication: DERMATITIS
     Dosage: UNK, BID
     Route: 065
  3. TORADOL [Concomitant]
     Active Substance: KETOROLAC TROMETHAMINE
     Indication: HEADACHE
     Dosage: UNK, UNKNOWN
     Route: 065

REACTIONS (4)
  - Balance disorder [Unknown]
  - Neck pain [Not Recovered/Not Resolved]
  - Loss of consciousness [Recovered/Resolved]
  - Swelling [Not Recovered/Not Resolved]

NARRATIVE: CASE EVENT DATE: 201910
